FAERS Safety Report 22995962 (Version 3)
Quarter: 2023Q4

REPORT INFORMATION
  Report Type: Spontaneous
  Country: US (occurrence: US)
  Receive Date: 20230927
  Receipt Date: 20231016
  Transmission Date: 20240110
  Serious: No
  Sender: FDA-Public Use
  Company Number: US-BRISTOL-MYERS SQUIBB COMPANY-2023-137295

PATIENT
  Age: 65 Year
  Sex: Female

DRUGS (1)
  1. LENALIDOMIDE [Suspect]
     Active Substance: LENALIDOMIDE
     Indication: Plasma cell myeloma
     Dosage: FREQUENCY:
     Route: 048
     Dates: start: 20230918

REACTIONS (10)
  - Cough [Not Recovered/Not Resolved]
  - Diarrhoea [Not Recovered/Not Resolved]
  - Epistaxis [Not Recovered/Not Resolved]
  - Anxiety [Unknown]
  - Fatigue [Unknown]
  - Dyspnoea [Unknown]
  - Depressed mood [Unknown]
  - Decreased appetite [Unknown]
  - Depression [Unknown]
  - Rhinorrhoea [Unknown]
